FAERS Safety Report 6386607-3 (Version None)
Quarter: 2009Q4

REPORT INFORMATION
  Report Type: 
  Country: None (occurrence: None)
  Receive Date: 20091002
  Receipt Date: 20090309
  Transmission Date: 20100525
  Serious: No
  Sender: FDA-Public Use
  Company Number: US-ASTRAZENECA-2009UW06281

PATIENT
  Age: 57 Year
  Sex: Female
  Weight: 81.2 kg

DRUGS (2)
  1. ARIMIDEX [Suspect]
     Indication: BREAST CANCER
     Route: 048
     Dates: start: 20090126
  2. CALCIUM [Concomitant]

REACTIONS (2)
  - DRUG DOSE OMISSION [None]
  - HYPERTENSION [None]
